FAERS Safety Report 11709563 (Version 2)
Quarter: 2015Q4

REPORT INFORMATION
  Report Type: Spontaneous
  Country: US (occurrence: US)
  Receive Date: 20151104
  Receipt Date: 20151110
  Transmission Date: 20160304
  Serious: No
  Sender: FDA-Public Use
  Company Number: US-ELI_LILLY_AND_COMPANY-US201106000966

PATIENT
  Sex: Female

DRUGS (1)
  1. FORTEO [Suspect]
     Active Substance: TERIPARATIDE
     Indication: OSTEOPOROSIS
     Dosage: UNK, UNKNOWN
     Route: 065
     Dates: end: 20110811

REACTIONS (10)
  - Decreased appetite [Unknown]
  - Injection site swelling [Unknown]
  - Injection site erythema [Unknown]
  - Palpitations [Unknown]
  - Injection site bruising [Unknown]
  - Malaise [Unknown]
  - Headache [Unknown]
  - Weight decreased [Unknown]
  - Dysgeusia [Unknown]
  - Dizziness [Unknown]
